FAERS Safety Report 15803233 (Version 2)
Quarter: 2019Q1

REPORT INFORMATION
  Report Type: Spontaneous
  Country: JP (occurrence: JP)
  Receive Date: 20190109
  Receipt Date: 20190116
  Transmission Date: 20190417
  Serious: Yes (Life-Threatening, Other)
  Sender: FDA-Public Use
  Company Number: JP-PFIZER INC-2018350031

PATIENT
  Age: 84 Year
  Sex: Male
  Weight: 53 kg

DRUGS (8)
  1. ELIQUIS [Suspect]
     Active Substance: APIXABAN
     Indication: CEREBROVASCULAR ACCIDENT PROPHYLAXIS
     Dosage: UNK
     Route: 065
     Dates: start: 20160313
  2. ELIQUIS [Suspect]
     Active Substance: APIXABAN
     Dosage: UNK
     Route: 065
     Dates: start: 20160410
  3. ELIQUIS [Suspect]
     Active Substance: APIXABAN
     Dosage: UNK
     Route: 065
     Dates: start: 20161111, end: 20161226
  4. ELIQUIS [Suspect]
     Active Substance: APIXABAN
     Dosage: 2.5 (UNIT UNKNOWN) TWICE DAILY (2X/DAY)
     Route: 048
     Dates: start: 20170129, end: 20171004
  5. ELIQUIS [Suspect]
     Active Substance: APIXABAN
     Dosage: 2.5 MG, BID
     Route: 048
  6. ELIQUIS [Suspect]
     Active Substance: APIXABAN
     Dosage: 2.5 (UNIT UNKNOWN) , 1X/DAY
     Dates: start: 20170114, end: 20170128
  7. AMLODIPINE BESILATE [Suspect]
     Active Substance: AMLODIPINE BESYLATE
     Indication: HYPERTENSION
     Dosage: 2.5 (UNIT UNKNOWN) ONCE DAILY, 1X/DAY
     Route: 048
  8. HARNAL [Suspect]
     Active Substance: TAMSULOSIN HYDROCHLORIDE
     Indication: BENIGN PROSTATIC HYPERPLASIA
     Dosage: 0.4 (UNIT UNKNOWN) TWICE DAILY (2X/DAY)
     Route: 048

REACTIONS (2)
  - Subdural haematoma [Recovering/Resolving]
  - Prescribed underdose [Unknown]

NARRATIVE: CASE EVENT DATE: 20171004
